FAERS Safety Report 7323738-5 (Version None)
Quarter: 2011Q1

REPORT INFORMATION
  Report Type: 
  Country: None (occurrence: None)
  Receive Date: 20110301
  Receipt Date: 20110207
  Transmission Date: 20110831
  Serious: Yes (Hospitalization)
  Sender: FDA-Public Use
  Company Number: US-BAYER-201025799NA

PATIENT
  Sex: Female
  Weight: 75 kg

DRUGS (7)
  1. YASMIN [Suspect]
     Indication: PRODUCT USED FOR UNKNOWN INDICATION
     Dosage: 1 DF (DAILY DOSE), , ORAL
     Route: 048
     Dates: start: 20040801, end: 20060101
  2. VICODIN [Concomitant]
     Indication: PAIN
  3. KARIVA [Concomitant]
     Indication: CONTRACEPTION
     Dates: start: 20080101
  4. IBUPROFEN [Concomitant]
     Indication: HEADACHE
  5. PHENERGAN [Concomitant]
  6. MIRCETTE [Concomitant]
     Indication: CONTRACEPTION
     Dosage: UNK
     Dates: start: 20071001
  7. YAZ [Suspect]
     Indication: PRODUCT USED FOR UNKNOWN INDICATION
     Dosage: 1 DF (DAILY DOSE), , ORAL
     Route: 048
     Dates: start: 20070901, end: 20071001

REACTIONS (6)
  - ABDOMINAL DISTENSION [None]
  - CHOLECYSTITIS ACUTE [None]
  - CHOLELITHIASIS [None]
  - ABDOMINAL PAIN [None]
  - WEIGHT DECREASED [None]
  - DECREASED APPETITE [None]
